FAERS Safety Report 6144774-0 (Version None)
Quarter: 2009Q2

REPORT INFORMATION
  Report Type: 
  Country: None (occurrence: None)
  Receive Date: 20090406
  Receipt Date: 20090402
  Transmission Date: 20091009
  Serious: Yes (Death)
  Sender: FDA-Public Use
  Company Number: ES-B.I. PHARMACEUTICALS,INC./RIDGEFIELD-2009-ES-00050ES

PATIENT
  Age: 82 Year
  Sex: Male

DRUGS (6)
  1. ATROVENT [Suspect]
     Indication: CHRONIC OBSTRUCTIVE PULMONARY DISEASE
     Dosage: 500MCG
     Route: 042
     Dates: start: 20090226, end: 20090226
  2. MIRAPEX [Suspect]
     Indication: PARKINSON'S DISEASE
     Route: 048
     Dates: end: 20090222
  3. BUTO-AIR [Suspect]
     Indication: CHRONIC OBSTRUCTIVE PULMONARY DISEASE
     Dosage: 2.5MG
     Route: 042
     Dates: start: 20090226, end: 20090226
  4. SINEMET [Suspect]
     Indication: PARKINSON'S DISEASE
     Dosage: 75 MG LEVODOPA/750MG CARBIDOPA
     Route: 048
     Dates: end: 20090222
  5. ATENOLOL [Concomitant]
     Indication: ACCIDENTAL OVERDOSE
     Dosage: 4MG
     Route: 042
     Dates: start: 20090226, end: 20090226
  6. AMOXICILINA + CLAVULANICO [Concomitant]
     Route: 065
     Dates: start: 20090222

REACTIONS (2)
  - MEDICATION ERROR [None]
  - NEUROLEPTIC MALIGNANT SYNDROME [None]
